FAERS Safety Report 18301318 (Version 3)
Quarter: 2020Q4

REPORT INFORMATION
  Report Type: Report from Study
  Country: None (occurrence: US)
  Receive Date: 20200923
  Receipt Date: 20201214
  Transmission Date: 20210113
  Serious: Yes (Hospitalization, Other)
  Sender: FDA-Public Use
  Company Number: US-ABBVIE-20K-163-3494799-00

PATIENT
  Age: 54 Year
  Sex: Female
  Weight: 92.62 kg

DRUGS (9)
  1. METHOTREXATE. [Concomitant]
     Active Substance: METHOTREXATE
     Indication: UVEITIS
  2. LISINOPRIL. [Concomitant]
     Active Substance: LISINOPRIL
     Indication: BLOOD PRESSURE MEASUREMENT
  3. PREDNISONE. [Concomitant]
     Active Substance: PREDNISONE
     Indication: INFLAMMATION
  4. PREDNISONE. [Concomitant]
     Active Substance: PREDNISONE
     Indication: LUNG DISORDER
  5. HUMIRA [Suspect]
     Active Substance: ADALIMUMAB
     Indication: UVEITIS
     Route: 058
     Dates: start: 2019, end: 202002
  6. METHOTREXATE. [Concomitant]
     Active Substance: METHOTREXATE
     Indication: INFLAMMATION
  7. HUMIRA [Suspect]
     Active Substance: ADALIMUMAB
     Route: 058
     Dates: start: 202002, end: 202007
  8. HUMIRA [Suspect]
     Active Substance: ADALIMUMAB
     Route: 058
     Dates: start: 202010
  9. SERTRALINE [Concomitant]
     Active Substance: SERTRALINE HYDROCHLORIDE
     Indication: DEPRESSION

REACTIONS (9)
  - Visual impairment [Not Recovered/Not Resolved]
  - Multiple fractures [Recovered/Resolved]
  - COVID-19 [Recovered/Resolved]
  - Immunodeficiency [Unknown]
  - Feeling abnormal [Not Recovered/Not Resolved]
  - Eye inflammation [Not Recovered/Not Resolved]
  - Fall [Unknown]
  - Gastrointestinal disorder [Not Recovered/Not Resolved]
  - Quarantine [Not Recovered/Not Resolved]

NARRATIVE: CASE EVENT DATE: 202007
